FAERS Safety Report 6016392-6 (Version None)
Quarter: 2008Q4

REPORT INFORMATION
  Report Type: 
  Country: None (occurrence: None)
  Receive Date: 20081218
  Receipt Date: 20081211
  Transmission Date: 20090506
  Serious: Yes (Hospitalization, Other)
  Sender: FDA-Public Use
  Company Number: 2008SP021100

PATIENT
  Age: 47 Year
  Sex: Male

DRUGS (3)
  1. RIBAVIRIN [Suspect]
     Indication: HEPATITIS C
     Dosage: PO
     Route: 048
     Dates: start: 20070101, end: 20070101
  2. PEGASYS [Suspect]
     Indication: HEPATITIS C
     Dates: start: 20070101, end: 20070101
  3. LEXAPRO [Concomitant]

REACTIONS (17)
  - CHRONIC HEPATIC FAILURE [None]
  - DEPRESSION [None]
  - FEELING HOT [None]
  - HAEMATEMESIS [None]
  - HEPATIC CIRRHOSIS [None]
  - HYPERTENSION [None]
  - ILL-DEFINED DISORDER [None]
  - IMPAIRED HEALING [None]
  - INSOMNIA [None]
  - PAIN [None]
  - PITTING OEDEMA [None]
  - PLATELET COUNT DECREASED [None]
  - PRURITUS [None]
  - SKIN ULCER [None]
  - SLEEP APNOEA SYNDROME [None]
  - SUICIDAL IDEATION [None]
  - WOUND [None]
